FAERS Safety Report 5474736-8 (Version None)
Quarter: 2007Q3

REPORT INFORMATION
  Report Type: 
  Country: None (occurrence: None)
  Receive Date: 20070927
  Receipt Date: 20070927
  Transmission Date: 20080115
  Serious: Yes (Life-Threatening, Hospitalization)
  Sender: FDA-Public Use
  Company Number: None

PATIENT
  Age: 79 Year
  Sex: Male

DRUGS (8)
  1. WARFARIN SODIUM [Suspect]
     Indication: ATRIAL FIBRILLATION
     Dosage: PO
     Route: 048
  2. ECONOPRED [Concomitant]
  3. DIGOXIN [Concomitant]
  4. ALPHAGAN [Concomitant]
  5. LOVASTATIN [Concomitant]
  6. ACYCLOVIR [Concomitant]
  7. CARTIA XT [Concomitant]
  8. METOPROLOL TARTRATE [Concomitant]

REACTIONS (2)
  - COAGULOPATHY [None]
  - SUBDURAL HAEMATOMA [None]
